FAERS Safety Report 25395765 (Version 1)
Quarter: 2025Q2

REPORT INFORMATION
  Report Type: Spontaneous
  Country: US (occurrence: None)
  Receive Date: 20250604
  Receipt Date: 20250604
  Transmission Date: 20250717
  Serious: Yes (Other)
  Sender: FDA-CTU
  Company Number: None

PATIENT
  Age: 60 Year
  Sex: Female

DRUGS (11)
  1. BOTOX [Suspect]
     Active Substance: ONABOTULINUMTOXINA
     Indication: Migraine
     Dates: start: 20241217
  2. AMLODIPINE [Concomitant]
     Active Substance: AMLODIPINE BESYLATE
  3. ARMOUR THYROID [Suspect]
     Active Substance: THYROID, PORCINE
  4. ASPIRIN [Concomitant]
     Active Substance: ASPIRIN
  5. BRISDELLE CAP [Concomitant]
  6. CHLORTHALIDONE [Concomitant]
     Active Substance: CHLORTHALIDONE
  7. COMPAZINE [Concomitant]
     Active Substance: PROCHLORPERAZINE MALEATE
  8. DEXILANT [Concomitant]
     Active Substance: DEXLANSOPRAZOLE
  9. EUFLEXXA [Concomitant]
     Active Substance: HYALURONATE SODIUM
  10. FISH OIL [Concomitant]
     Active Substance: FISH OIL
  11. FOLIC ACID [Concomitant]
     Active Substance: FOLIC ACID

REACTIONS (2)
  - Anaphylactic shock [None]
  - Facial paralysis [None]

NARRATIVE: CASE EVENT DATE: 20250404
